FAERS Safety Report 5521153-8 (Version None)
Quarter: 2007Q4

REPORT INFORMATION
  Report Type: 
  Country: None (occurrence: None)
  Receive Date: 20071119
  Receipt Date: 20071113
  Transmission Date: 20080405
  Serious: Yes (Hospitalization)
  Sender: FDA-Public Use
  Company Number: JP-ASTRAZENECA-2007AP07292

PATIENT
  Sex: Male

DRUGS (1)
  1. ZOLADEX LA 10.8MG DEPOT [Suspect]
     Indication: PROSTATE CANCER
     Route: 058

REACTIONS (1)
  - HEPATITIS [None]
